FAERS Safety Report 14689730 (Version 1)
Quarter: 2018Q1

REPORT INFORMATION
  Report Type: Spontaneous
  Country: US (occurrence: US)
  Receive Date: 20180328
  Receipt Date: 20180328
  Transmission Date: 20180509
  Serious: Yes (Other)
  Sender: FDA-Public Use
  Company Number: US-PFIZER INC-2018126070

PATIENT
  Age: 58 Year
  Sex: Female
  Weight: 83.46 kg

DRUGS (3)
  1. MELOXICAM. [Concomitant]
     Active Substance: MELOXICAM
     Indication: ARTHRITIS
     Dosage: 7.5 MG, 2X/DAY (7.5MG TWICE DAILY BY MOUTH WITH THE PREDNISONE)
     Route: 048
     Dates: start: 201707
  2. XELJANZ XR [Suspect]
     Active Substance: TOFACITINIB CITRATE
     Indication: RHEUMATOID ARTHRITIS
     Dosage: 11 MG, 1X/DAY
     Route: 048
     Dates: start: 20180219, end: 20180301
  3. PREDNISONE. [Concomitant]
     Active Substance: PREDNISONE
     Indication: ARTHRITIS
     Dosage: 5 MG, 2X/DAY (5MG TWICE DAILY BY MOUTH, 1 IN MORNING AND 1 AT NIGHT)
     Route: 048
     Dates: start: 201707

REACTIONS (3)
  - Hepatic pain [Recovered/Resolved]
  - Fungal infection [Recovering/Resolving]
  - Malignant polyp [Unknown]

NARRATIVE: CASE EVENT DATE: 20180301
